FAERS Safety Report 5196057-3 (Version None)
Quarter: 2006Q4

REPORT INFORMATION
  Report Type: 
  Country: None (occurrence: None)
  Receive Date: 20061221
  Receipt Date: 20061213
  Transmission Date: 20070319
  Serious: Yes (Death)
  Sender: FDA-Public Use
  Company Number: 2006AL003945

PATIENT
  Age: 70 Year
  Sex: Female

DRUGS (6)
  1. IBUPROFEN [Suspect]
     Dosage: 600 MG;QD;PO
     Route: 048
     Dates: start: 20060313, end: 20060313
  2. AMITRIPTYLINE HCL [Concomitant]
  3. SIMVASTATIN [Concomitant]
  4. AMLODIPINE [Concomitant]
  5. VENTOLIN [Concomitant]
  6. BECOTIDE [Concomitant]

REACTIONS (1)
  - DEATH [None]
